FAERS Safety Report 9142323 (Version 1)
Quarter: 2013Q1

REPORT INFORMATION
  Report Type: Spontaneous
  Country: US (occurrence: US)
  Receive Date: 20130306
  Receipt Date: 20130306
  Transmission Date: 20140127
  Serious: No
  Sender: FDA-Public Use
  Company Number: US-009507513-1303USA000697

PATIENT
  Sex: Female

DRUGS (2)
  1. ZIOPTAN [Suspect]
     Indication: GLAUCOMA
     Dosage: 0.0015% 1 DROP EACH EYE/ ONCE DAILY IN THE EVENING
     Route: 047
     Dates: start: 201206
  2. MINOCYCLINE [Concomitant]

REACTIONS (4)
  - Retinal haemorrhage [Not Recovered/Not Resolved]
  - Dry eye [Not Recovered/Not Resolved]
  - Eye irritation [Not Recovered/Not Resolved]
  - Ocular hyperaemia [Not Recovered/Not Resolved]
